FAERS Safety Report 7626398-9 (Version None)
Quarter: 2011Q3

REPORT INFORMATION
  Report Type: 
  Country: None (occurrence: None)
  Receive Date: 20110714
  Receipt Date: 20110711
  Transmission Date: 20111222
  Serious: Yes (Death)
  Sender: FDA-Public Use
  Company Number: 1000021777

PATIENT
  Age: 85 Year
  Sex: Male

DRUGS (20)
  1. PHENYLEPHRINE HCL [Concomitant]
  2. SLEEP AID TABLETS PERFECT CHOICE (MELATONIN) [Concomitant]
  3. VITAMIN C/ROSE HIPS (VITAMIN C, ROSE HIPS) [Concomitant]
  4. OMEPRAZOLE DR [Concomitant]
  5. ZOLPIDEM [Concomitant]
  6. LEVOBUNOLOL [Concomitant]
  7. XALATAN [Concomitant]
  8. RITE AID LAXATIVE (BISCODYL) [Concomitant]
  9. PEPTO BISMOL (BISMUTH) [Concomitant]
  10. NAMENDA [Suspect]
     Indication: DEMENTIA ALZHEIMER'S TYPE
     Dosage: 5 MG (5 MG, 1 IN 1 D), ORAL; 10 MG (5 M, 2 IN 1 D), ORAL; 10 MG AM/ 5 MG, PM, ORAL;
     Route: 048
     Dates: start: 20110527, end: 20110602
  11. NAMENDA [Suspect]
     Indication: DEMENTIA ALZHEIMER'S TYPE
     Dosage: 5 MG (5 MG, 1 IN 1 D), ORAL; 10 MG (5 M, 2 IN 1 D), ORAL; 10 MG AM/ 5 MG, PM, ORAL;
     Route: 048
     Dates: start: 20110603, end: 20110603
  12. NAMENDA [Suspect]
     Indication: DEMENTIA ALZHEIMER'S TYPE
     Dosage: 5 MG (5 MG, 1 IN 1 D), ORAL; 10 MG (5 M, 2 IN 1 D), ORAL; 10 MG AM/ 5 MG, PM, ORAL;
     Route: 048
     Dates: start: 20110520, end: 20110526
  13. AZOPT [Concomitant]
  14. IMODIUM MULTI-SYMPTOM (LOPERAMIDE) [Concomitant]
  15. CVS NIGHTTIME SLEEP AID (DIPHENHYDRAMINE) [Concomitant]
  16. LOVASTATIN [Concomitant]
  17. LOMOTIL (DIPHENOXYLATE, ATROPINE) [Concomitant]
  18. TERAZOSIN HCL [Concomitant]
  19. FINASTERIDE [Concomitant]
  20. ASCORBIC ACID [Concomitant]

REACTIONS (2)
  - GUN SHOT WOUND [None]
  - COMPLETED SUICIDE [None]
